FAERS Safety Report 8882801 (Version 11)
Quarter: 2013Q3

REPORT INFORMATION
  Report Type: Spontaneous
  Country: TR (occurrence: TR)
  Receive Date: 20121105
  Receipt Date: 20130926
  Transmission Date: 20140515
  Serious: Yes (Death, Hospitalization, Other)
  Sender: FDA-Public Use
  Company Number: TR-CELGENEUS-161-21880-12110213

PATIENT
  Age: 74 Year
  Sex: Male
  Weight: 75 kg

DRUGS (7)
  1. REVLIMID [Suspect]
     Indication: PLASMA CELL MYELOMA
     Dosage: 25 MILLIGRAM
     Route: 048
     Dates: start: 20121003, end: 20121119
  2. REVLIMID [Suspect]
     Route: 048
     Dates: end: 20130211
  3. ELOTUZUMAB [Suspect]
     Indication: PLASMA CELL MYELOMA
     Dosage: 750 MILLIGRAM
     Route: 041
     Dates: start: 20121003, end: 20121114
  4. ELOTUZUMAB [Suspect]
     Route: 065
     Dates: end: 20130211
  5. DEXAMETHASONE [Suspect]
     Indication: PLASMA CELL MYELOMA
     Dosage: 28 MILLIGRAM
     Route: 048
     Dates: start: 20121003, end: 20121114
  6. DEXAMETHASONE [Suspect]
     Dosage: 8 MILLIGRAM
     Route: 041
     Dates: start: 20121003, end: 20121114
  7. DEXAMETHASONE [Suspect]
     Route: 065
     Dates: end: 20130211

REACTIONS (3)
  - Bladder transitional cell carcinoma [Recovered/Resolved]
  - Pneumonia fungal [Recovered/Resolved]
  - Respiratory distress [Fatal]
